FAERS Safety Report 17820481 (Version 3)
Quarter: 2022Q3

REPORT INFORMATION
  Report Type: Spontaneous
  Country: JP (occurrence: JP)
  Receive Date: 20200525
  Receipt Date: 20220713
  Transmission Date: 20221026
  Serious: Yes (Other)
  Sender: FDA-Public Use
  Company Number: JP-GSKNCCC-CASE-00944132_AE-28803

PATIENT

DRUGS (3)
  1. ATOVAQUONE [Suspect]
     Active Substance: ATOVAQUONE
     Indication: Pneumocystis jirovecii infection
     Dosage: 10 ML, U
     Route: 048
  2. ATOVAQUONE [Suspect]
     Active Substance: ATOVAQUONE
     Indication: Antifungal prophylaxis
  3. SULFAMETHOXAZOLE\TRIMETHOPRIM [Concomitant]
     Active Substance: SULFAMETHOXAZOLE\TRIMETHOPRIM
     Indication: Pneumocystis jirovecii infection
     Dosage: UNK

REACTIONS (2)
  - Interstitial lung disease [Unknown]
  - Feeding disorder [Unknown]

NARRATIVE: CASE EVENT DATE: 20200519
